FAERS Safety Report 11185402 (Version 1)
Quarter: 2015Q2

REPORT INFORMATION
  Report Type: Spontaneous
  Country: US (occurrence: US)
  Receive Date: 20150612
  Receipt Date: 20150612
  Transmission Date: 20150821
  Serious: Yes (Hospitalization, Other)
  Sender: FDA-Public Use
  Company Number: US-CIPLA LTD.-2015US04532

PATIENT

DRUGS (2)
  1. SIMVASTATIN. [Suspect]
     Active Substance: SIMVASTATIN
     Dosage: 80 MG NIGHTLY
     Route: 065
  2. AMLODIPINE [Suspect]
     Active Substance: AMLODIPINE BESYLATE
     Indication: HYPERTENSION
     Dosage: 10 MG, DAILY

REACTIONS (8)
  - Vital capacity decreased [Unknown]
  - Acute kidney injury [Unknown]
  - Muscle atrophy [Unknown]
  - Muscle necrosis [Unknown]
  - Respiratory distress [Unknown]
  - Myopathy [Unknown]
  - Rhabdomyolysis [None]
  - Drug interaction [Unknown]
